FAERS Safety Report 6979906-5 (Version None)
Quarter: 2010Q3

REPORT INFORMATION
  Report Type: 
  Country: None (occurrence: None)
  Receive Date: 20100914
  Receipt Date: 20100831
  Transmission Date: 20110219
  Serious: Yes (Hospitalization)
  Sender: FDA-Public Use
  Company Number: US-ELI_LILLY_AND_COMPANY-US201009000940

PATIENT
  Age: 79 Year
  Sex: Female

DRUGS (3)
  1. FORTEO [Suspect]
     Dosage: 20 UG, DAILY (1/D)
     Dates: start: 20100701
  2. DARVOCET-N 100 [Concomitant]
     Indication: PAIN
  3. AMBIEN [Concomitant]
     Indication: SLEEP DISORDER

REACTIONS (10)
  - CHOLELITHIASIS [None]
  - DANDRUFF [None]
  - DRY SKIN [None]
  - DYSPEPSIA [None]
  - ILL-DEFINED DISORDER [None]
  - LIP SWELLING [None]
  - MALAISE [None]
  - PAIN [None]
  - TONGUE DISORDER [None]
  - WEIGHT DECREASED [None]
